FAERS Safety Report 20912816 (Version 1)
Quarter: 2022Q2

REPORT INFORMATION
  Report Type: Spontaneous
  Country: US (occurrence: US)
  Receive Date: 20220603
  Receipt Date: 20220603
  Transmission Date: 20220720
  Serious: No
  Sender: FDA-Public Use
  Company Number: US-INCYTE CORPORATION-2022IN005223

PATIENT

DRUGS (2)
  1. JAKAFI [Suspect]
     Active Substance: RUXOLITINIB
     Indication: Chronic graft versus host disease
     Dosage: 5 MILLIGRAM, BID
     Route: 048
  2. REZUROCK [Concomitant]
     Active Substance: BELUMOSUDIL
     Indication: Product used for unknown indication
     Route: 065

REACTIONS (9)
  - Platelet count increased [Unknown]
  - Blood iron decreased [Unknown]
  - Abdominal distension [Unknown]
  - Flatulence [Unknown]
  - Abdominal distension [Unknown]
  - Swelling face [Unknown]
  - Chapped lips [Unknown]
  - Erythema [Unknown]
  - Dyspnoea [Unknown]
